FAERS Safety Report 5563338-0 (Version None)
Quarter: 2007Q4

REPORT INFORMATION
  Report Type: 
  Country: None (occurrence: None)
  Receive Date: 20071217
  Receipt Date: 20071206
  Transmission Date: 20080405
  Serious: Yes (Congenital Anomaly, Other)
  Sender: FDA-Public Use
  Company Number: US-ROCHE-442107

PATIENT
  Sex: Female
  Weight: 2.4 kg

DRUGS (2)
  1. COPEGUS [Suspect]
     Dates: start: 20050711
  2. PEGASYS [Suspect]
     Dates: start: 20050711

REACTIONS (4)
  - INFANT [None]
  - PHENYLALANINE SCREEN POSITIVE [None]
  - PLAGIOCEPHALY [None]
  - TORTICOLLIS [None]
